FAERS Safety Report 9626969 (Version 6)
Quarter: 2014Q2

REPORT INFORMATION
  Report Type: Spontaneous
  Country: CN (occurrence: CN)
  Receive Date: 20131016
  Receipt Date: 20140516
  Transmission Date: 20141212
  Serious: Yes (Hospitalization)
  Sender: FDA-Public Use
  Company Number: PHHY2013CN114987

PATIENT
  Age: 79 Year
  Sex: Female

DRUGS (23)
  1. ACLASTA [Suspect]
     Indication: OSTEOPOROSIS
     Dosage: 5 MG, ONE TIME PER YEAR
     Route: 042
     Dates: start: 20130814, end: 20130821
  2. ADALAT [Concomitant]
     Dosage: 30 MG, QD
     Route: 048
     Dates: start: 20130101, end: 20131112
  3. PLAVIX [Concomitant]
     Dosage: 75 MG, QD
     Route: 048
     Dates: start: 20130101, end: 20131111
  4. ZOCOR [Concomitant]
     Dosage: 20 MG, ONCE EVERY EVENING
     Route: 048
     Dates: start: 20130101, end: 20131111
  5. CALTRATE [Concomitant]
     Route: 048
     Dates: start: 20130101, end: 20131112
  6. ROCALTROL [Concomitant]
     Dosage: 0.25 UG, ONCE EVERY EVENING SOFT CAPSULES
     Route: 048
     Dates: start: 20130101, end: 20131112
  7. GLUCOSE [Concomitant]
     Route: 042
     Dates: start: 20130101, end: 20130112
  8. MOTILIUM ^BYK GULDEN^ [Concomitant]
     Dosage: 10 MG, QD
     Route: 048
     Dates: start: 20130101, end: 20131112
  9. KETOPROFEN [Concomitant]
     Dosage: 30 G, QD
     Route: 061
     Dates: start: 20130101, end: 20131112
  10. CAPTOPRIL [Concomitant]
     Route: 048
     Dates: start: 20130101, end: 20131112
  11. PLENDIL [Concomitant]
     Dosage: 5 MG, QD
     Route: 048
     Dates: start: 20130101, end: 20131112
  12. COZAAR [Concomitant]
     Dosage: 100 MG, QD
     Route: 048
     Dates: start: 20130101, end: 20131112
  13. NITRENDIPINE [Concomitant]
     Route: 048
     Dates: start: 20130101, end: 20131112
  14. CALTRATE 600 + VITAMIN D [Concomitant]
     Route: 048
     Dates: start: 20130101, end: 20131112
  15. NITROGLYCERIN [Concomitant]
     Dosage: 10 MG, QD
     Route: 042
     Dates: start: 20130101, end: 20131112
  16. SMECTA                             /00837601/ [Concomitant]
     Dosage: 3 G, QD
     Route: 048
     Dates: start: 20130101, end: 20131112
  17. GLUCOSE + SODIUM CHLORIDE [Concomitant]
     Route: 042
     Dates: start: 20130101, end: 20131112
  18. POTASSIUM CHLORIDE [Concomitant]
     Route: 042
     Dates: start: 20130101, end: 20131112
  19. NORMAL SALINE [Concomitant]
     Route: 042
     Dates: start: 20130101, end: 20131112
  20. VITAMIN C [Concomitant]
     Route: 048
     Dates: start: 20130101, end: 20131112
  21. VITAMIN B6 [Concomitant]
     Route: 048
     Dates: start: 20130101, end: 20131112
  22. LANSOPRAZOLE [Concomitant]
     Dosage: 30 MG, QD
     Route: 042
     Dates: start: 20130101, end: 20131112
  23. GLYCERIN [Concomitant]
     Route: 054
     Dates: start: 20130101, end: 20131112

REACTIONS (22)
  - Cerebral infarction [Recovering/Resolving]
  - Hallucination [Recovering/Resolving]
  - Dysphoria [Recovering/Resolving]
  - Chest discomfort [Recovering/Resolving]
  - Renal tubular necrosis [Recovering/Resolving]
  - Affect lability [Recovering/Resolving]
  - Renal failure acute [Recovering/Resolving]
  - Asthenia [Recovering/Resolving]
  - Vomiting [Recovering/Resolving]
  - Renal impairment [Recovering/Resolving]
  - Decreased appetite [Recovering/Resolving]
  - Fatigue [Recovering/Resolving]
  - Lethargy [Recovering/Resolving]
  - Diarrhoea [Recovering/Resolving]
  - Hypertension [Recovering/Resolving]
  - Pyrexia [Recovering/Resolving]
  - Myalgia [Recovering/Resolving]
  - Arthralgia [Recovering/Resolving]
  - Pain [Recovering/Resolving]
  - Dyspepsia [Recovering/Resolving]
  - Abdominal pain [Recovering/Resolving]
  - Back pain [Recovering/Resolving]
